FAERS Safety Report 4827438-2 (Version None)
Quarter: 2005Q4

REPORT INFORMATION
  Report Type: 
  Country: None (occurrence: None)
  Receive Date: 20051110
  Receipt Date: 20051026
  Transmission Date: 20060501
  Serious: Yes (Other)
  Sender: FDA-Public Use
  Company Number: USA-2005-0021685

PATIENT
  Sex: Female

DRUGS (1)
  1. SENOKOT [Suspect]

REACTIONS (4)
  - DRUG DEPENDENCE [None]
  - DRUG EFFECT DECREASED [None]
  - EMOTIONAL DISORDER [None]
  - INJURY [None]
